FAERS Safety Report 9907040 (Version 3)
Quarter: 2015Q3

REPORT INFORMATION
  Report Type: Spontaneous
  Country: US (occurrence: US)
  Receive Date: 20140218
  Receipt Date: 20150811
  Transmission Date: 20151125
  Serious: No
  Sender: FDA-Public Use
  Company Number: US-GILEAD-2012-0054024

PATIENT
  Age: 75 Year
  Sex: Male
  Weight: 95.24 kg

DRUGS (30)
  1. LETAIRIS [Suspect]
     Active Substance: AMBRISENTAN
     Indication: PULMONARY HYPERTENSION
     Dosage: 10 MG, UNK
     Route: 048
     Dates: start: 20120323, end: 20120403
  2. LOTRISONE [Concomitant]
     Active Substance: BETAMETHASONE DIPROPIONATE\CLOTRIMAZOLE
  3. LANOXIN [Concomitant]
     Active Substance: DIGOXIN
  4. DIOVAN [Concomitant]
     Active Substance: VALSARTAN
  5. NITROSTAT [Concomitant]
     Active Substance: NITROGLYCERIN
  6. LOPID [Concomitant]
     Active Substance: GEMFIBROZIL
  7. PREGABALIN. [Concomitant]
     Active Substance: PREGABALIN
  8. KLOR-CON [Concomitant]
     Active Substance: POTASSIUM CHLORIDE
  9. IMDUR [Concomitant]
     Active Substance: ISOSORBIDE MONONITRATE
  10. MULTIPLE VITAMINS [Concomitant]
     Active Substance: VITAMINS
  11. CARAFATE [Concomitant]
     Active Substance: SUCRALFATE
  12. PROAIR HFA [Concomitant]
     Active Substance: ALBUTEROL SULFATE
  13. NEURONTIN [Concomitant]
     Active Substance: GABAPENTIN
  14. FLOVENT HFA [Concomitant]
     Active Substance: FLUTICASONE PROPIONATE
  15. COUMADINE [Concomitant]
     Active Substance: WARFARIN SODIUM
  16. LIPITOR [Concomitant]
     Active Substance: ATORVASTATIN CALCIUM
  17. TAMSULOSIN [Concomitant]
     Active Substance: TAMSULOSIN
  18. DEXILANT [Concomitant]
     Active Substance: DEXLANSOPRAZOLE
  19. DEMADEX [Concomitant]
     Active Substance: TORSEMIDE
  20. NOVOLOG [Concomitant]
     Active Substance: INSULIN ASPART
  21. AMARYL [Concomitant]
     Active Substance: GLIMEPIRIDE
  22. TADALAFIL [Concomitant]
     Active Substance: TADALAFIL
  23. VITAMIN D [Concomitant]
     Active Substance: CHOLECALCIFEROL
  24. SPIRIVA [Concomitant]
     Active Substance: TIOTROPIUM BROMIDE MONOHYDRATE
  25. PRILOSEC [Concomitant]
     Active Substance: OMEPRAZOLE MAGNESIUM
  26. KENALOG [Concomitant]
     Active Substance: TRIAMCINOLONE ACETONIDE
  27. OXYGEN. [Concomitant]
     Active Substance: OXYGEN
  28. LANTUS [Concomitant]
     Active Substance: INSULIN GLARGINE
  29. ASPIRIN. [Concomitant]
     Active Substance: ASPIRIN
  30. LOPRESSOR [Concomitant]
     Active Substance: METOPROLOL TARTRATE

REACTIONS (5)
  - Wheezing [Unknown]
  - Vision blurred [Recovered/Resolved]
  - Fatigue [Unknown]
  - Headache [Unknown]
  - Malaise [Recovered/Resolved]

NARRATIVE: CASE EVENT DATE: 20120402
